FAERS Safety Report 8182926-9 (Version None)
Quarter: 2012Q1

REPORT INFORMATION
  Report Type: 
  Country: None (occurrence: None)
  Receive Date: 20120305
  Receipt Date: 20120228
  Transmission Date: 20120608
  Serious: Yes (Other)
  Sender: FDA-Public Use
  Company Number: NL-AMGEN-NLDSP2012008324

PATIENT
  Age: 61 Year
  Sex: Female
  Weight: 60 kg

DRUGS (4)
  1. PROLIA [Suspect]
     Indication: OSTEOPOROSIS
     Dosage: UNK
     Dates: start: 20110802
  2. VITAMIN D [Concomitant]
     Dosage: 50000 UNK, QMO
     Route: 048
  3. PANTOZOL                           /01263204/ [Concomitant]
     Dosage: 40 MG, UNK
     Route: 048
  4. VACCINES [Concomitant]
     Dosage: UNK
     Dates: start: 20110804

REACTIONS (3)
  - COUGH [None]
  - SWELLING [None]
  - SARCOIDOSIS [None]
